FAERS Safety Report 20731738 (Version 1)
Quarter: 2022Q2

REPORT INFORMATION
  Report Type: Spontaneous
  Country: US (occurrence: US)
  Receive Date: 20220420
  Receipt Date: 20220420
  Transmission Date: 20220721
  Serious: No
  Sender: FDA-Public Use
  Company Number: US-ChurchDwight-2022-CDW-00026

PATIENT
  Age: 23 Year
  Sex: Male

DRUGS (1)
  1. OXYMETAZOLINE HYDROCHLORIDE [Suspect]
     Active Substance: OXYMETAZOLINE HYDROCHLORIDE
     Indication: Nasal congestion
     Dosage: USED ONCE, 2 SPRAYS IN EACH NOSTRIL.
     Route: 045
     Dates: start: 20220405, end: 20220405

REACTIONS (1)
  - Anosmia [Not Recovered/Not Resolved]

NARRATIVE: CASE EVENT DATE: 20220405
